FAERS Safety Report 10267374 (Version 1)
Quarter: 2014Q2

REPORT INFORMATION
  Report Type: Spontaneous
  Country: PT (occurrence: PT)
  Receive Date: 20140630
  Receipt Date: 20140630
  Transmission Date: 20141212
  Serious: Yes (Hospitalization, Disabling)
  Sender: FDA-Public Use
  Company Number: PT-MYLANLABS-2014S1014778

PATIENT
  Age: 10 Year
  Sex: Female

DRUGS (11)
  1. LINEZOLID [Suspect]
     Indication: TUBERCULOSIS
     Dosage: 600 MG/DAY
     Route: 065
  2. CIPROFLOXACIN [Suspect]
     Route: 065
  3. AMOXICILLIN [Concomitant]
     Dosage: 100 MG/KG/DAY
     Route: 065
  4. RIFAMPICIN [Concomitant]
     Indication: TUBERCULOSIS
     Dosage: 600 MG/DAY
     Route: 065
  5. ISONIAZID [Concomitant]
     Indication: TUBERCULOSIS
     Dosage: 300 MG/DAY
     Route: 065
  6. PYRAZINAMIDE [Concomitant]
     Indication: TUBERCULOSIS
     Dosage: 900 MG/DAY
     Route: 065
  7. ETHAMBUTOL [Concomitant]
     Indication: TUBERCULOSIS
     Dosage: 400 MG/DAY
     Route: 065
  8. LEVOFLOXACIN [Concomitant]
     Indication: TUBERCULOSIS
     Dosage: 250 MG/DAY
     Route: 065
  9. AMINOSALICYLIC ACID [Concomitant]
     Indication: TUBERCULOSIS
     Dosage: 4 G/DAY
     Route: 065
  10. CYCLOSERINE [Concomitant]
     Indication: TUBERCULOSIS
     Dosage: 500 MG/DAY
     Route: 065
  11. AMIKACIN [Concomitant]
     Indication: TUBERCULOSIS
     Dosage: 500 MG/DAY
     Route: 065

REACTIONS (2)
  - Bone marrow failure [Recovering/Resolving]
  - Synovitis [Recovered/Resolved]
